FAERS Safety Report 19149638 (Version 1)
Quarter: 2021Q2

REPORT INFORMATION
  Report Type: Spontaneous
  Country: US (occurrence: US)
  Receive Date: 20210417
  Receipt Date: 20210417
  Transmission Date: 20210717
  Serious: No
  Sender: FDA-Public Use
  Company Number: US-LUPIN PHARMACEUTICALS INC.-2021-03720

PATIENT
  Age: 63 Year
  Weight: 83.9 kg

DRUGS (2)
  1. FENOFIBRATE TABLETS USP, 160 MG [Suspect]
     Active Substance: FENOFIBRATE
     Indication: BLOOD CHOLESTEROL INCREASED
     Dosage: UNK
     Route: 048
     Dates: start: 20210201, end: 20210211
  2. FENOFIBRATE TABLETS USP, 160 MG [Suspect]
     Active Substance: FENOFIBRATE
     Indication: BLOOD CHOLESTEROL DECREASED

REACTIONS (3)
  - Product dispensing error [Unknown]
  - Back pain [Recovered/Resolved]
  - Abdominal pain [Recovered/Resolved]
